FAERS Safety Report 5020882-2 (Version None)
Quarter: 2006Q2

REPORT INFORMATION
  Report Type: 
  Country: None (occurrence: None)
  Receive Date: 20060606
  Receipt Date: 20060606
  Transmission Date: 20061013
  Serious: No
  Sender: FDA-Public Use
  Company Number: None

PATIENT

DRUGS (1)
  1. OXYCONTIN [Suspect]
     Indication: FIBROMYALGIA
     Dosage: 20 MG BID

REACTIONS (1)
  - DRUG INEFFECTIVE [None]
